FAERS Safety Report 25864910 (Version 2)
Quarter: 2025Q4

REPORT INFORMATION
  Report Type: Report from Study
  Country: CR (occurrence: CR)
  Receive Date: 20250930
  Receipt Date: 20251217
  Transmission Date: 20260117
  Serious: Yes (Hospitalization)
  Sender: ELI LILLY AND COMPANY
  Company Number: CR-ELI_LILLY_AND_COMPANY-CR202406007624

PATIENT
  Age: 64 Year
  Sex: Female

DRUGS (23)
  1. VERZENIO [Suspect]
     Active Substance: ABEMACICLIB
     Indication: Breast cancer
     Dosage: 150 MG, BID
     Route: 048
     Dates: start: 20240518, end: 202501
  2. VERZENIO [Suspect]
     Active Substance: ABEMACICLIB
     Dosage: 150 MG, BID
     Route: 048
  3. VERZENIO [Suspect]
     Active Substance: ABEMACICLIB
     Dosage: 100 MG, BID
     Route: 048
  4. VERZENIO [Suspect]
     Active Substance: ABEMACICLIB
     Dosage: 100 MG, DAILY
     Route: 048
  5. VERZENIO [Suspect]
     Active Substance: ABEMACICLIB
     Dosage: 150 MG, DAILY
     Route: 048
  6. LOPERAMIDE [Concomitant]
     Active Substance: LOPERAMIDE
     Indication: Diarrhoea
     Dosage: 4 MG, UNKNOWN
  7. LOPERAMIDE [Concomitant]
     Active Substance: LOPERAMIDE
     Indication: Malaise
     Dosage: 4 MG, UNKNOWN
     Dates: start: 20250119
  8. ALENDRONATE [Concomitant]
     Active Substance: ALENDRONATE SODIUM
     Indication: Osteoporosis
     Dosage: 70 MG, WEEKLY (1/W)
  9. FAMOTIDINE [Concomitant]
     Active Substance: FAMOTIDINE
     Indication: Gastritis
  10. VITAMIN D NOS [Concomitant]
     Active Substance: CHOLECALCIFEROL\ERGOCALCIFEROL
     Indication: Osteoporosis
     Dosage: 2000 U, DAILY (4 DROPS)
  11. IONIC CALCIUM [Concomitant]
     Indication: Product used for unknown indication
     Dosage: 1200 MG, DAILY
  12. HYDROCHLOROTHIAZIDE [Concomitant]
     Active Substance: HYDROCHLOROTHIAZIDE
     Indication: Product used for unknown indication
     Dosage: 25 MG, DAILY
  13. LORATADINE [Concomitant]
     Active Substance: LORATADINE
     Indication: Product used for unknown indication
  14. ANASTROZOLE [Concomitant]
     Active Substance: ANASTROZOLE
     Indication: Product used for unknown indication
     Dosage: 1 MG
  15. LETROZOLE [Concomitant]
     Active Substance: LETROZOLE
     Indication: Product used for unknown indication
     Dosage: 2.5 MG
  16. GABAPENTIN [Concomitant]
     Active Substance: GABAPENTIN
     Indication: Product used for unknown indication
     Dosage: 300 MG, DAILY
  17. IRBESARTAN [Concomitant]
     Active Substance: IRBESARTAN
     Indication: Product used for unknown indication
     Dosage: 150 MG, DAILY (SOMETIMES TAKEN HALF OR NOT AT ALL)
  18. FIBER THERAPY (CALCIUM POLYCARBOPHIL) [Concomitant]
     Active Substance: CALCIUM POLYCARBOPHIL
     Indication: Product used for unknown indication
  19. BUTYLSCOPOLAMINE [Concomitant]
     Active Substance: BUTYLSCOPOLAMINE
     Indication: Product used for unknown indication
  20. ALUMINUM HYDROXIDE [Concomitant]
     Active Substance: ALUMINUM HYDROXIDE
     Indication: Product used for unknown indication
  21. OMEPRAZOLE [Concomitant]
     Active Substance: OMEPRAZOLE
     Indication: Chronic gastritis
  22. SCOPOLAMINE [Concomitant]
     Active Substance: SCOPOLAMINE
     Indication: Product used for unknown indication
  23. VITAMIN C [Concomitant]
     Active Substance: ASCORBIC ACID
     Indication: Osteoporosis

REACTIONS (29)
  - Pancreatitis [Recovered/Resolved]
  - Nephropathy [Not Recovered/Not Resolved]
  - Depressed mood [Not Recovered/Not Resolved]
  - Taste disorder [Not Recovered/Not Resolved]
  - Sleep disorder due to general medical condition, insomnia type [Recovered/Resolved]
  - Colitis [Unknown]
  - Influenza [Not Recovered/Not Resolved]
  - Basophil percentage increased [Not Recovered/Not Resolved]
  - Mean cell volume decreased [Not Recovered/Not Resolved]
  - Mean cell haemoglobin decreased [Not Recovered/Not Resolved]
  - Mean cell haemoglobin concentration increased [Not Recovered/Not Resolved]
  - Blood sodium decreased [Not Recovered/Not Resolved]
  - Blood chloride decreased [Not Recovered/Not Resolved]
  - Cholelithiasis [Not Recovered/Not Resolved]
  - Weight decreased [Unknown]
  - Malaise [Recovering/Resolving]
  - Off label use [Unknown]
  - Lymphoedema [Not Recovered/Not Resolved]
  - Abdominal pain upper [Not Recovered/Not Resolved]
  - Abdominal pain [Not Recovered/Not Resolved]
  - Lymphocyte count decreased [Not Recovered/Not Resolved]
  - Decreased appetite [Not Recovered/Not Resolved]
  - Haemoglobin decreased [Not Recovered/Not Resolved]
  - Haematocrit decreased [Not Recovered/Not Resolved]
  - White blood cell count decreased [Not Recovered/Not Resolved]
  - Platelet count decreased [Not Recovered/Not Resolved]
  - Neutrophil count decreased [Not Recovered/Not Resolved]
  - Red blood cell count decreased [Not Recovered/Not Resolved]
  - Diarrhoea [Recovering/Resolving]

NARRATIVE: CASE EVENT DATE: 20240601
